FAERS Safety Report 22400598 (Version 2)
Quarter: 2023Q2

REPORT INFORMATION
  Report Type: Report from Study
  Country: BG (occurrence: BG)
  Receive Date: 20230602
  Receipt Date: 20230611
  Transmission Date: 20230722
  Serious: Yes (Death, Hospitalization)
  Sender: FDA-Public Use
  Company Number: BG-CELGENE-BGR-20211103791

PATIENT
  Age: 67 Year
  Sex: Male
  Weight: 82 kg

DRUGS (14)
  1. Salofalk [Concomitant]
     Indication: Colitis ulcerative
     Dosage: 1500 MILLIGRAM
     Route: 048
     Dates: start: 201310
  2. ROSUVASTATIN [Concomitant]
     Active Substance: ROSUVASTATIN
     Indication: Hypertension
     Dosage: 10/14/1.25 MILLIGRAM
     Route: 048
     Dates: start: 20210505
  3. CHLOPHADON [Concomitant]
     Indication: Hypertension
     Dosage: 0.15/ 20 MILLIGRAM
     Route: 048
     Dates: start: 2013, end: 20210505
  4. ENDOFALK [Concomitant]
     Indication: Colonoscopy
     Dosage: 6 SACHETS
     Route: 048
     Dates: start: 20170809, end: 20170809
  5. ENDOFALK [Concomitant]
     Dosage: 6 SACHETS
     Route: 048
     Dates: start: 20180711, end: 20180711
  6. ENDOFALK [Concomitant]
     Dosage: 6 SACHETS
     Route: 048
     Dates: start: 20190619, end: 20190619
  7. ENDOFALK [Concomitant]
     Dosage: 6 SACHETS
     Route: 048
     Dates: start: 20200510, end: 20200510
  8. ENDOFALK [Concomitant]
     Dosage: 6 SACHETS
     Route: 048
     Dates: start: 20210414, end: 20210414
  9. PROPOFOL [Concomitant]
     Active Substance: PROPOFOL
     Indication: Colonoscopy
     Dosage: 300 MILLIGRAM
     Route: 042
     Dates: start: 20180712, end: 20180712
  10. PROPOFOL [Concomitant]
     Active Substance: PROPOFOL
     Dosage: 300 MILLIGRAM
     Route: 042
     Dates: start: 20180810, end: 20180810
  11. PROPOFOL [Concomitant]
     Active Substance: PROPOFOL
     Dosage: 230 MILLIGRAM
     Route: 042
     Dates: start: 20190620, end: 20190620
  12. PROPOFOL [Concomitant]
     Active Substance: PROPOFOL
     Dosage: 250 MILLIGRAM
     Route: 042
     Dates: start: 20200511, end: 20200511
  13. PROPOFOL [Concomitant]
     Active Substance: PROPOFOL
     Dosage: 320 MILLIGRAM
     Route: 042
     Dates: start: 20210415, end: 20210415
  14. PERINDOPRIL [Concomitant]
     Active Substance: PERINDOPRIL
     Indication: Hypertension
     Dosage: 10/14/1.25 MILLIGRAM
     Route: 048
     Dates: start: 20210505

REACTIONS (1)
  - COVID-19 [Fatal]

NARRATIVE: CASE EVENT DATE: 20211001
